FAERS Safety Report 7952624-2 (Version None)
Quarter: 2011Q4

REPORT INFORMATION
  Report Type: 
  Country: None (occurrence: None)
  Receive Date: 20111201
  Receipt Date: 20111122
  Transmission Date: 20120403
  Serious: Yes (Hospitalization)
  Sender: FDA-Public Use
  Company Number: US-JNJFOC-20111102169

PATIENT
  Sex: Male
  Weight: 85 kg

DRUGS (14)
  1. OMEPRAZOLE [Concomitant]
     Dates: start: 20111004
  2. PREDNISONE TAB [Concomitant]
     Indication: POLYMYALGIA RHEUMATICA
     Dates: start: 20110317
  3. ASACOL [Suspect]
     Indication: COLITIS
     Route: 048
     Dates: end: 20111103
  4. METHOTREXATE [Suspect]
     Indication: RHEUMATOID ARTHRITIS
     Route: 048
     Dates: end: 20111103
  5. ENOXAPARIN [Concomitant]
  6. WARFARIN SODIUM [Concomitant]
  7. XARELTO [Suspect]
     Indication: HIP ARTHROPLASTY
     Route: 048
     Dates: start: 20111013, end: 20111103
  8. METHOTREXATE [Suspect]
     Indication: CROHN'S DISEASE
     Route: 048
     Dates: end: 20111103
  9. PREDNISONE TAB [Concomitant]
     Indication: CROHN'S DISEASE
     Dates: start: 20110101
  10. GLUCOSAMINE [Concomitant]
     Route: 048
  11. ASACOL [Suspect]
     Indication: CROHN'S DISEASE
     Route: 048
     Dates: end: 20111103
  12. SIMVASTATIN [Concomitant]
     Dates: start: 20110728
  13. PREDNISONE TAB [Concomitant]
     Indication: RHEUMATOID ARTHRITIS
     Dates: start: 20110317
  14. FISH OIL [Concomitant]

REACTIONS (10)
  - POOR QUALITY SLEEP [None]
  - ASTHENIA [None]
  - ARTHRALGIA [None]
  - PYREXIA [None]
  - LEUKOPENIA [None]
  - DYSPNOEA [None]
  - MYALGIA [None]
  - NAUSEA [None]
  - FIBRIN D DIMER INCREASED [None]
  - CHEST PAIN [None]
